FAERS Safety Report 12731578 (Version 2)
Quarter: 2016Q3

REPORT INFORMATION
  Report Type: Spontaneous
  Country: US (occurrence: US)
  Receive Date: 20160912
  Receipt Date: 20160921
  Transmission Date: 20161109
  Serious: Yes (Hospitalization, Other)
  Sender: FDA-Public Use
  Company Number: US-JNJFOC-20160625785

PATIENT
  Age: 64 Year
  Sex: Female

DRUGS (1)
  1. XARELTO [Suspect]
     Active Substance: RIVAROXABAN
     Indication: MESENTERIC VEIN THROMBOSIS
     Route: 048
     Dates: start: 20151221, end: 20151228

REACTIONS (4)
  - Gastrointestinal haemorrhage [Recovered/Resolved]
  - Off label use [Unknown]
  - Product use issue [Unknown]
  - Internal haemorrhage [Recovered/Resolved]

NARRATIVE: CASE EVENT DATE: 201512
